FAERS Safety Report 9250573 (Version 1)
Quarter: 2013Q1

REPORT INFORMATION
  Report Type: Spontaneous
  Country: US (occurrence: None)
  Receive Date: 20130305
  Receipt Date: 20130305
  Transmission Date: 20140127
  Serious: Yes (Other)
  Sender: FDA-Public Use
  Company Number: 163-21880-12081663

PATIENT
  Age: 58 Year
  Sex: Male
  Weight: 131.54 kg

DRUGS (2)
  1. REVLIMID [Suspect]
     Indication: PLASMA CELL MYELOMA
     Route: 048
     Dates: start: 201007
  2. VELCADE (BORTEZOMIB) [Concomitant]

REACTIONS (4)
  - Hallucination [None]
  - Rash [None]
  - Pruritus [None]
  - Vision blurred [None]
